FAERS Safety Report 14674466 (Version 1)
Quarter: 2018Q1

REPORT INFORMATION
  Report Type: Spontaneous
  Country: CA (occurrence: CA)
  Receive Date: 20180323
  Receipt Date: 20180323
  Transmission Date: 20180509
  Serious: Yes (Disabling)
  Sender: FDA-Public Use
  Company Number: CA-BAYER-2018-051780

PATIENT
  Age: 20 Year
  Sex: Female
  Weight: 90.7 kg

DRUGS (2)
  1. MIRENA [Suspect]
     Active Substance: LEVONORGESTREL
  2. MIRENA [Suspect]
     Active Substance: LEVONORGESTREL
     Dosage: 20 MCG/24HR, CONT
     Route: 015

REACTIONS (11)
  - Muscular weakness [Recovered/Resolved]
  - Acne [Recovered/Resolved]
  - Depression [Recovered/Resolved]
  - Hunger [Recovered/Resolved]
  - Hypersomnia [Recovered/Resolved]
  - Irritability [Recovered/Resolved]
  - Metrorrhagia [Recovered/Resolved]
  - Loss of libido [Recovered/Resolved]
  - Menstruation irregular [Recovered/Resolved]
  - Vaginal discharge [Recovered/Resolved]
  - Weight increased [Recovered/Resolved]
